FAERS Safety Report 4609012-6 (Version None)
Quarter: 2005Q1

REPORT INFORMATION
  Report Type: 
  Country: None (occurrence: None)
  Receive Date: 20050311
  Receipt Date: 20050301
  Transmission Date: 20050727
  Serious: Yes (Death, Hospitalization, Other)
  Sender: FDA-Public Use
  Company Number: 2005039827

PATIENT
  Sex: Female
  Weight: 74.8435 kg

DRUGS (6)
  1. DILANTIN [Suspect]
     Indication: CONVULSION
     Dosage: 300 MG (300 MG, 1 IN 1 D)
  2. ZOLOFT [Suspect]
     Indication: MOOD SWINGS
     Dosage: 50 MG (50 MG, 1 IN 1 D)
  3. BEXTRA [Suspect]
     Indication: ARTHRITIS
     Dosage: 10 MG (10 MG, 1 IN 1 D)
  4. DETROL LA [Suspect]
     Indication: INCONTINENCE
     Dosage: 2 MG (2 MG, 1 IN 1 D)
  5. TENORETIC 100 [Concomitant]
  6. POTASSIUM CHLORIDE [Concomitant]

REACTIONS (7)
  - ARTHRALGIA [None]
  - ARTHRITIS [None]
  - BODY HEIGHT DECREASED [None]
  - CARDIAC FAILURE CONGESTIVE [None]
  - COGNITIVE DISORDER [None]
  - INCONTINENCE [None]
  - MOOD SWINGS [None]
